FAERS Safety Report 10195563 (Version 1)
Quarter: 2014Q2

REPORT INFORMATION
  Report Type: Spontaneous
  Country: US (occurrence: US)
  Receive Date: 20140527
  Receipt Date: 20140527
  Transmission Date: 20141212
  Serious: Yes (Hospitalization, Other)
  Sender: FDA-Public Use
  Company Number: PHHY2014US059472

PATIENT
  Age: 46 Year
  Sex: Male

DRUGS (1)
  1. LEVOFLOXACIN [Suspect]
     Indication: PROSTATITIS
     Route: 048

REACTIONS (8)
  - Osmotic demyelination syndrome [Recovering/Resolving]
  - Unresponsive to stimuli [Recovering/Resolving]
  - Quadriparesis [Recovering/Resolving]
  - Bradypnoea [Recovering/Resolving]
  - Hyporeflexia [Recovering/Resolving]
  - Posture abnormal [Recovering/Resolving]
  - Hypothermia [Recovering/Resolving]
  - Hypoglycaemia [Recovering/Resolving]
